FAERS Safety Report 16769177 (Version 1)
Quarter: 2019Q3

REPORT INFORMATION
  Report Type: Spontaneous
  Country: DE (occurrence: DE)
  Receive Date: 20190903
  Receipt Date: 20190903
  Transmission Date: 20191005
  Serious: Yes (Disabling, Other)
  Sender: FDA-Public Use
  Company Number: PHHY2019DE180512

PATIENT
  Sex: Male
  Weight: 68 kg

DRUGS (2)
  1. LEVOFLOXACIN - 1 A PHARMA [Suspect]
     Active Substance: LEVOFLOXACIN
     Indication: CYSTITIS NONINFECTIVE
  2. LEVOFLOXACIN - 1 A PHARMA [Suspect]
     Active Substance: LEVOFLOXACIN
     Indication: URINARY TRACT INFLAMMATION
     Dosage: 500 MG, UNK
     Route: 065
     Dates: start: 20190712, end: 20190717

REACTIONS (4)
  - Inflammation [Recovering/Resolving]
  - Tendon pain [Recovering/Resolving]
  - Gait inability [Recovering/Resolving]
  - Peripheral swelling [Recovering/Resolving]

NARRATIVE: CASE EVENT DATE: 20190716
